FAERS Safety Report 7618859-3 (Version None)
Quarter: 2011Q3

REPORT INFORMATION
  Report Type: 
  Country: None (occurrence: None)
  Receive Date: 20110718
  Receipt Date: 20110713
  Transmission Date: 20111222
  Serious: Yes (Death, Other)
  Sender: FDA-Public Use
  Company Number: IN-PFIZER INC-2011157460

PATIENT
  Age: 47 Year
  Sex: Female

DRUGS (5)
  1. PACLITAXEL [Concomitant]
     Indication: BREAST CANCER
  2. EPIRUBICIN HYDROCHLORIDE [Suspect]
     Indication: BREAST CANCER
     Dosage: 4 CYCLES OVER 4 MONTHS
  3. CYCLOPHOSPHAMIDE [Suspect]
     Indication: BREAST CANCER
     Dosage: 4 CYCLES OVER 4 MONTHS
  4. FLUOROURACIL [Suspect]
     Indication: BREAST CANCER
     Dosage: 4 CYCLES OVER 4 MONTHS
  5. TAMOXIFEN [Concomitant]
     Indication: BREAST CANCER
     Route: 048

REACTIONS (1)
  - MYELODYSPLASTIC SYNDROME [None]
